FAERS Safety Report 9838671 (Version 2)
Quarter: 2014Q4

REPORT INFORMATION
  Report Type: Spontaneous
  Country: US (occurrence: None)
  Receive Date: 20131206
  Receipt Date: 20141209
  Transmission Date: 20150529
  Serious: Yes (Hospitalization)
  Sender: FDA-Public Use
  Company Number: 387193

PATIENT
  Age: 50 Year
  Sex: Female
  Weight: 85.3 kg

DRUGS (3)
  1. NOVOLOG [Suspect]
     Active Substance: INSULIN ASPART
     Indication: TYPE 2 DIABETES MELLITUS
     Dosage: 30 U, TID, SUBCUTANEOUS
     Route: 058
     Dates: start: 20120504
  2. LASIX [Concomitant]
     Active Substance: FUROSEMIDE
  3. LANTUS [Suspect]
     Active Substance: INSULIN GLARGINE
     Indication: TYPE 2 DIABETES MELLITUS
     Dosage: 50 U, QD, SUBCUTANEOUS
     Route: 058

REACTIONS (3)
  - Weight increased [None]
  - Oedema peripheral [None]
  - Blood potassium decreased [None]

NARRATIVE: CASE EVENT DATE: 201306
